FAERS Safety Report 12741300 (Version 1)
Quarter: 2016Q3

REPORT INFORMATION
  Report Type: Spontaneous
  Country: CN (occurrence: CN)
  Receive Date: 20160914
  Receipt Date: 20160914
  Transmission Date: 20161109
  Serious: Yes (Hospitalization)
  Sender: FDA-Public Use
  Company Number: CN-ROCHE-1829005

PATIENT
  Age: 53 Year
  Sex: Female
  Weight: 67 kg

DRUGS (4)
  1. SODIUM CHLORIDE. [Concomitant]
     Active Substance: SODIUM CHLORIDE
     Dosage: 0.9%
     Route: 065
  2. ROCEPHIN [Suspect]
     Active Substance: CEFTRIAXONE SODIUM
     Indication: CENTRAL NERVOUS SYSTEM INFECTION
     Route: 041
     Dates: start: 201603, end: 20160330
  3. VANCOMYCIN HYDROCHLORIDE. [Suspect]
     Active Substance: VANCOMYCIN HYDROCHLORIDE
     Indication: CENTRAL NERVOUS SYSTEM INFECTION
     Route: 041
     Dates: start: 20160329, end: 20160329
  4. TEICOPLANIN [Concomitant]
     Active Substance: TEICOPLANIN

REACTIONS (1)
  - Red man syndrome [Recovering/Resolving]

NARRATIVE: CASE EVENT DATE: 20160329
